FAERS Safety Report 5541542-5 (Version None)
Quarter: 2007Q4

REPORT INFORMATION
  Report Type: 
  Country: None (occurrence: None)
  Receive Date: 20071210
  Receipt Date: 20071204
  Transmission Date: 20080405
  Serious: Yes (Death)
  Sender: FDA-Public Use
  Company Number: US-AVENTIS-200720725GDDC

PATIENT
  Age: 86 Year
  Sex: Male

DRUGS (3)
  1. LANTUS [Suspect]
     Route: 058
  2. SULFONAMIDES, UREA DERIVATIVES [Concomitant]
  3. ASPIRIN [Concomitant]

REACTIONS (1)
  - DEATH [None]
